FAERS Safety Report 6279578-1 (Version None)
Quarter: 2009Q3

REPORT INFORMATION
  Report Type: 
  Country: None (occurrence: None)
  Receive Date: 20090723
  Receipt Date: 20090716
  Transmission Date: 20100115
  Serious: Yes (Hospitalization)
  Sender: FDA-Public Use
  Company Number: A0797326A

PATIENT
  Age: 54 Year
  Sex: Female

DRUGS (4)
  1. LAMICTAL [Suspect]
     Indication: BIPOLAR DISORDER
     Dosage: 200MCG PER DAY
     Route: 048
     Dates: start: 20070101, end: 20090501
  2. KLONOPIN [Concomitant]
  3. REMERON [Concomitant]
  4. THORAZINE [Concomitant]

REACTIONS (6)
  - ALOPECIA [None]
  - CONVULSION [None]
  - DIZZINESS [None]
  - EYELID PTOSIS [None]
  - MUSCLE TWITCHING [None]
  - SUICIDAL IDEATION [None]
